FAERS Safety Report 18620512 (Version 2)
Quarter: 2020Q4

REPORT INFORMATION
  Report Type: Spontaneous
  Country: US (occurrence: US)
  Receive Date: 20201216
  Receipt Date: 20201223
  Transmission Date: 20210114
  Serious: Yes (Other)
  Sender: FDA-Public Use
  Company Number: US-AMGEN-USASP2020201316

PATIENT
  Age: 70 Year
  Sex: Female

DRUGS (1)
  1. PROLIA [Suspect]
     Active Substance: DENOSUMAB
     Indication: OSTEOPOROSIS
     Dosage: 60 MILLIGRAM, Q6MO
     Route: 065

REACTIONS (6)
  - Sinus disorder [Unknown]
  - Muscle tightness [Unknown]
  - Temporomandibular joint syndrome [Unknown]
  - Deafness [Unknown]
  - Arthritis [Unknown]
  - Headache [Unknown]

NARRATIVE: CASE EVENT DATE: 202006
